FAERS Safety Report 17286001 (Version 5)
Quarter: 2023Q2

REPORT INFORMATION
  Report Type: Spontaneous
  Country: PL (occurrence: PL)
  Receive Date: 20200118
  Receipt Date: 20230620
  Transmission Date: 20230722
  Serious: Yes (Death, Life-Threatening, Hospitalization, Other)
  Sender: FDA-Public Use
  Company Number: PL-POLFAT-NDL-01-2020

PATIENT
  Age: 60 Year
  Sex: Male

DRUGS (7)
  1. CEFUROXIME [Suspect]
     Active Substance: CEFUROXIME
     Indication: Staphylococcal sepsis
     Dosage: UNK
     Route: 065
  2. CEFUROXIME [Suspect]
     Active Substance: CEFUROXIME
     Indication: Pneumonia staphylococcal
  3. CEFAZOLIN [Suspect]
     Active Substance: CEFAZOLIN
     Indication: Pneumonia staphylococcal
     Dosage: UNK
     Route: 065
  4. CEFAZOLIN [Suspect]
     Active Substance: CEFAZOLIN
     Indication: Staphylococcal sepsis
  5. DOBUTAMINE [Suspect]
     Active Substance: DOBUTAMINE HYDROCHLORIDE
     Indication: Shock
     Dosage: UNK
     Route: 065
  6. IMIPENEM [Suspect]
     Active Substance: IMIPENEM
     Indication: Pseudomonas infection
     Dosage: UNK
     Route: 065
  7. IMIPENEM [Suspect]
     Active Substance: IMIPENEM
     Indication: Acinetobacter infection

REACTIONS (6)
  - Shock [Fatal]
  - Toxic epidermal necrolysis [Fatal]
  - Acinetobacter infection [Fatal]
  - Pseudomonas infection [Fatal]
  - Metabolic acidosis [Fatal]
  - Drug ineffective [Fatal]
